FAERS Safety Report 16363923 (Version 5)
Quarter: 2020Q2

REPORT INFORMATION
  Report Type: Report from Study
  Country: DO (occurrence: DO)
  Receive Date: 20190528
  Receipt Date: 20200526
  Transmission Date: 20200713
  Serious: Yes (Hospitalization)
  Sender: FDA-Public Use
  Company Number: PHHY2019DO121466

PATIENT
  Age: 35 Year
  Sex: Female

DRUGS (2)
  1. GILENYA [Suspect]
     Active Substance: FINGOLIMOD HYDROCHLORIDE
     Dosage: 0.5 MG, QD
     Route: 048
     Dates: start: 20200117
  2. GILENYA [Suspect]
     Active Substance: FINGOLIMOD HYDROCHLORIDE
     Indication: RELAPSING-REMITTING MULTIPLE SCLEROSIS
     Dosage: 0.5 MG, UNK
     Route: 065
     Dates: start: 2013, end: 201812

REACTIONS (15)
  - Contusion [Unknown]
  - Abdominal discomfort [Unknown]
  - Nausea [Unknown]
  - Fatigue [Unknown]
  - Pain in extremity [Not Recovered/Not Resolved]
  - Hypoaesthesia [Unknown]
  - Visual impairment [Recovering/Resolving]
  - Pain [Unknown]
  - Gastritis [Unknown]
  - Pain in extremity [Recovered/Resolved]
  - Full blood count decreased [Unknown]
  - Multiple sclerosis relapse [Recovering/Resolving]
  - Gait disturbance [Unknown]
  - Vomiting [Unknown]
  - Influenza [Unknown]

NARRATIVE: CASE EVENT DATE: 20200120
